FAERS Safety Report 19867550 (Version 2)
Quarter: 2021Q4

REPORT INFORMATION
  Report Type: Report from Study
  Country: US (occurrence: US)
  Receive Date: 20210922
  Receipt Date: 20211116
  Transmission Date: 20220303
  Serious: Yes (Other)
  Sender: FDA-Public Use
  Company Number: US-ABBVIE-21K-163-4071754-00

PATIENT
  Sex: Female
  Weight: 68.554 kg

DRUGS (1)
  1. HUMIRA [Suspect]
     Active Substance: ADALIMUMAB
     Indication: Psoriasis
     Dosage: CF
     Route: 058
     Dates: start: 20190916

REACTIONS (9)
  - Glaucoma [Not Recovered/Not Resolved]
  - Mobility decreased [Unknown]
  - Joint dislocation [Recovered/Resolved]
  - Ligament sprain [Recovered/Resolved]
  - Body height decreased [Not Recovered/Not Resolved]
  - Papule [Recovered/Resolved]
  - Hypoacusis [Not Recovered/Not Resolved]
  - Fall [Recovered/Resolved]
  - Erythema [Recovered/Resolved]

NARRATIVE: CASE EVENT DATE: 20190101
